FAERS Safety Report 13260788 (Version 1)
Quarter: 2017Q1

REPORT INFORMATION
  Report Type: Spontaneous
  Country: US (occurrence: US)
  Receive Date: 20170222
  Receipt Date: 20170222
  Transmission Date: 20170428
  Serious: Yes (Other)
  Sender: FDA-Public Use
  Company Number: US-PFIZER INC-2017068792

PATIENT
  Age: 61 Year
  Sex: Female

DRUGS (4)
  1. SOLU-MEDROL [Suspect]
     Active Substance: METHYLPREDNISOLONE SODIUM SUCCINATE
     Dosage: 120 MG, UNK
  2. RITUXAN [Concomitant]
     Active Substance: RITUXIMAB
     Dosage: UNK
  3. BENADRYL [Concomitant]
     Active Substance: DIPHENHYDRAMINE HYDROCHLORIDE
     Dosage: UNK
  4. TYLENOL [Concomitant]
     Active Substance: ACETAMINOPHEN
     Dosage: UNK

REACTIONS (9)
  - Constipation [Unknown]
  - Diarrhoea [Unknown]
  - Feeling jittery [Unknown]
  - Intestinal obstruction [Unknown]
  - Anxiety [Unknown]
  - Enteritis infectious [Unknown]
  - Enteritis [Unknown]
  - Hunger [Unknown]
  - Diverticulitis [Unknown]
